FAERS Safety Report 12977470 (Version 1)
Quarter: 2016Q4

REPORT INFORMATION
  Report Type: Spontaneous
  Country: US (occurrence: US)
  Receive Date: 20161128
  Receipt Date: 20161128
  Transmission Date: 20170207
  Serious: No
  Sender: FDA-Public Use
  Company Number: US-NOVEL LABORATORIES, INC-E2B_00005963

PATIENT
  Age: 42 Year
  Sex: Female
  Weight: 44.45 kg

DRUGS (2)
  1. GAVILAX [Suspect]
     Active Substance: POLYETHYLENE GLYCOL 3350
     Indication: PRODUCT USED FOR UNKNOWN INDICATION
     Dosage: 1 CAPFUL INITIALLY
     Route: 048
     Dates: start: 20160509
  2. GAVILAX [Suspect]
     Active Substance: POLYETHYLENE GLYCOL 3350
     Dosage: 1 CAPFUL INITIALLY
     Route: 048

REACTIONS (4)
  - Flatulence [Unknown]
  - Product taste abnormal [Unknown]
  - Product odour abnormal [Unknown]
  - Drug ineffective [Unknown]

NARRATIVE: CASE EVENT DATE: 20160509
